FAERS Safety Report 5485819-0 (Version None)
Quarter: 2007Q4

REPORT INFORMATION
  Report Type: 
  Country: None (occurrence: None)
  Receive Date: 20071001
  Receipt Date: 20070509
  Transmission Date: 20080405
  Serious: Yes (Other)
  Sender: FDA-Public Use
  Company Number: TPA2007A00982

PATIENT
  Age: 49 Year
  Sex: Male
  Weight: 127.0072 kg

DRUGS (9)
  1. ACTOS [Suspect]
     Indication: TYPE 2 DIABETES MELLITUS
     Dosage: 30 MG, 1 IN 1 D PER ORAL
     Route: 048
     Dates: start: 20070309, end: 20070502
  2. XANAX [Concomitant]
  3. OXYCONTIN [Concomitant]
  4. AVINZA [Concomitant]
  5. WELLBUTRIN XL [Concomitant]
  6. LYRICA [Concomitant]
  7. CRESTOR [Concomitant]
  8. ZETIA [Concomitant]
  9. HALCION [Concomitant]

REACTIONS (1)
  - DYSPNOEA [None]
